FAERS Safety Report 9120386 (Version 1)
Quarter: 2013Q1

REPORT INFORMATION
  Report Type: Spontaneous
  Country: BR (occurrence: BR)
  Receive Date: 20130226
  Receipt Date: 20130226
  Transmission Date: 20140127
  Serious: Yes (Other)
  Sender: FDA-Public Use
  Company Number: PHHY2013BR017732

PATIENT
  Sex: Female

DRUGS (2)
  1. DICLOFENAC [Suspect]
     Indication: RHEUMATOID ARTHRITIS
     Dosage: UNK UKN, UNK
  2. AMITRIPTYLINE [Suspect]
     Dosage: UNK UKN, UNK

REACTIONS (6)
  - Feeling hot [Unknown]
  - Vision blurred [Unknown]
  - Somnolence [Unknown]
  - Pain [Unknown]
  - Decreased activity [Unknown]
  - Malaise [Unknown]
